FAERS Safety Report 25553940 (Version 2)
Quarter: 2025Q3

REPORT INFORMATION
  Report Type: Spontaneous
  Country: US (occurrence: US)
  Receive Date: 20250715
  Receipt Date: 20250818
  Transmission Date: 20251021
  Serious: Yes (Hospitalization)
  Sender: ROCHE
  Company Number: US-ROCHE-10000332225

PATIENT
  Age: 60 Year
  Sex: Female

DRUGS (1)
  1. TNKASE [Suspect]
     Active Substance: TENECTEPLASE
     Indication: Transient global amnesia
     Route: 065

REACTIONS (3)
  - Cerebral haemorrhage [Unknown]
  - Cerebrovascular accident [Unknown]
  - Dizziness [Unknown]
